FAERS Safety Report 7934578-8 (Version None)
Quarter: 2011Q4

REPORT INFORMATION
  Report Type: 
  Country: None (occurrence: None)
  Receive Date: 20111122
  Receipt Date: 20111107
  Transmission Date: 20120403
  Serious: Yes (Death, Other)
  Sender: FDA-Public Use
  Company Number: BR-WATSON-2011-18428

PATIENT
  Age: 19 Year
  Sex: Male

DRUGS (6)
  1. AZATHIOPRINE [Suspect]
     Dosage: 150 MG, DAILY  (3 MG/KG)
  2. AZATHIOPRINE [Suspect]
     Dosage: 200 MG, DAILY (4 MG/KG)
     Dates: start: 19720601
  3. METHYLPREDNISOLONE [Suspect]
     Indication: IMMUNOSUPPRESSION
     Dosage: 1 G, X 3 DAYS
     Route: 042
  4. PREDNISONE TAB [Suspect]
     Indication: IMMUNOSUPPRESSION
     Dosage: UNKNOWN
     Route: 065
  5. PREDNISOLONE [Suspect]
     Indication: IMMUNOSUPPRESSION
     Dosage: UNK
  6. AZATHIOPRINE [Suspect]
     Indication: IMMUNOSUPPRESSION
     Dosage: 200 MG, DAILY (4 MG/KG)
     Route: 065
     Dates: start: 19730101

REACTIONS (1)
  - CHRONIC MYELOID LEUKAEMIA [None]
